FAERS Safety Report 18226327 (Version 1)
Quarter: 2020Q3

REPORT INFORMATION
  Report Type: Spontaneous
  Country: US (occurrence: US)
  Receive Date: 20200903
  Receipt Date: 20200903
  Transmission Date: 20201103
  Serious: No
  Sender: FDA-Public Use
  Company Number: US-BAUSCH-BL-2020-024356

PATIENT
  Sex: Female

DRUGS (6)
  1. ELIDEL [Suspect]
     Active Substance: PIMECROLIMUS
     Indication: DERMATITIS ATOPIC
  2. EUCRISA [Concomitant]
     Active Substance: CRISABOROLE
     Indication: ECZEMA
     Dosage: TOPICAL OINTMENT; APPLY TOPICAL ROUTE 2 TIMES EVERY DAY A THIN LAYER TO AFFECTED AREA; DISP:100 GRAM
     Route: 061
     Dates: start: 20180515, end: 20190730
  3. AQUAPHOR [Concomitant]
     Active Substance: PETROLATUM
     Indication: ECZEMA
  4. ELIDEL [Suspect]
     Active Substance: PIMECROLIMUS
     Indication: ECZEMA
     Route: 065
  5. AQUAPHOR [Concomitant]
     Active Substance: PETROLATUM
     Indication: DERMATITIS ATOPIC
  6. EUCRISA [Concomitant]
     Active Substance: CRISABOROLE
     Indication: DERMATITIS ATOPIC

REACTIONS (1)
  - Therapeutic product effect incomplete [Unknown]
